FAERS Safety Report 19682211 (Version 1)
Quarter: 2021Q3

REPORT INFORMATION
  Report Type: Spontaneous
  Country: US (occurrence: US)
  Receive Date: 20210811
  Receipt Date: 20210811
  Transmission Date: 20211014
  Serious: Yes (Other)
  Sender: FDA-Public Use
  Company Number: US-UNICHEM PHARMACEUTICALS (USA) INC-UCM202108-000727

PATIENT
  Age: 36 Year
  Sex: Male
  Weight: 74.8 kg

DRUGS (2)
  1. COSENTYX [Concomitant]
     Active Substance: SECUKINUMAB
     Indication: ANKYLOSING SPONDYLITIS
  2. MELOXICAM. [Suspect]
     Active Substance: MELOXICAM
     Indication: ANKYLOSING SPONDYLITIS
     Dosage: WITH FOOD
     Route: 048

REACTIONS (2)
  - Product use in unapproved indication [Unknown]
  - Ankylosing spondylitis [Not Recovered/Not Resolved]

NARRATIVE: CASE EVENT DATE: 20210722
